FAERS Safety Report 15651684 (Version 1)
Quarter: 2018Q4

REPORT INFORMATION
  Report Type: Spontaneous
  Country: ZA (occurrence: ZA)
  Receive Date: 20181123
  Receipt Date: 20181123
  Transmission Date: 20190205
  Serious: Yes (Other)
  Sender: FDA-Public Use
  Company Number: PHHY2018ZA159154

PATIENT
  Sex: Male

DRUGS (1)
  1. CILODEX OTIC (ALC) [Suspect]
     Active Substance: CIPROFLOXACIN\DEXAMETHASONE
     Indication: OTITIS EXTERNA
     Dosage: 4 GTT, BID
     Route: 061

REACTIONS (1)
  - Ear infection fungal [Recovered/Resolved]
